FAERS Safety Report 8934677 (Version 1)
Quarter: 2012Q4

REPORT INFORMATION
  Report Type: 
  Country: US (occurrence: US)
  Receive Date: 20121129
  Receipt Date: 20121129
  Transmission Date: 20130627
  Serious: Yes (Other)
  Sender: FDA-Public Use
  Company Number: US-ALLERGAN-1216277US

PATIENT
  Age: 57 Year
  Sex: Female

DRUGS (1)
  1. BOTOX� [Suspect]
     Indication: OVERACTIVE BLADDER
     Dosage: 200 UNITS, single
     Route: 030
     Dates: start: 20120228, end: 20120228

REACTIONS (2)
  - Bladder disorder [Not Recovered/Not Resolved]
  - Urinary retention [Unknown]
